FAERS Safety Report 15494347 (Version 1)
Quarter: 2018Q4

REPORT INFORMATION
  Report Type: Spontaneous
  Country: CA (occurrence: CA)
  Receive Date: 20181012
  Receipt Date: 20181012
  Transmission Date: 20190205
  Serious: Yes (Other)
  Sender: FDA-Public Use
  Company Number: CA-MYLANLABS-2018M1075570

PATIENT
  Age: 54 Year
  Sex: Female

DRUGS (11)
  1. DEXAMETHASONE. [Concomitant]
     Active Substance: DEXAMETHASONE
     Indication: PLASMA CELL MYELOMA
     Route: 065
  2. CALCIUM [Concomitant]
     Active Substance: CALCIUM
     Indication: SUPPLEMENTATION THERAPY
     Route: 065
  3. VITAMIN D                          /00107901/ [Concomitant]
     Active Substance: ERGOCALCIFEROL
     Indication: SUPPLEMENTATION THERAPY
     Route: 065
  4. BORTEZOMIB. [Concomitant]
     Active Substance: BORTEZOMIB
     Indication: PLASMA CELL MYELOMA
     Route: 065
  5. PAMIDRONATE [Suspect]
     Active Substance: PAMIDRONATE DISODIUM
     Indication: PROPHYLAXIS
     Dosage: 90 MG, MONTHLY
     Route: 042
  6. CYCLOPHOSPHAMIDE. [Concomitant]
     Active Substance: CYCLOPHOSPHAMIDE
     Indication: PLASMA CELL MYELOMA
     Route: 065
  7. RISEDRONATE [Suspect]
     Active Substance: RISEDRONATE SODIUM
     Indication: FRACTURE
     Route: 065
     Dates: start: 2014, end: 201410
  8. ESTRADIOL. [Concomitant]
     Active Substance: ESTRADIOL
     Indication: MENOPAUSAL SYMPTOMS
     Dosage: 0.025MG/DAY TWICE A WEEK
     Route: 065
  9. ALENDRONATE [Suspect]
     Active Substance: ALENDRONATE SODIUM
     Indication: BONE LOSS
     Route: 065
     Dates: start: 2000, end: 2010
  10. ALENDRONATE [Suspect]
     Active Substance: ALENDRONATE SODIUM
     Indication: PATELLA FRACTURE
  11. PAMIDRONATE [Suspect]
     Active Substance: PAMIDRONATE DISODIUM
     Dosage: EVERY 2 MONTHS AND PLANNED FOR A SHORTER DURATION OF 1 YEAR INSTEAD OF 2 YEARS
     Route: 042

REACTIONS (1)
  - Atypical femur fracture [Recovering/Resolving]
